FAERS Safety Report 5122363-4 (Version None)
Quarter: 2006Q4

REPORT INFORMATION
  Report Type: 
  Country: None (occurrence: None)
  Receive Date: 20061004
  Receipt Date: 20060925
  Transmission Date: 20070319
  Serious: Yes (Death, Hospitalization)
  Sender: FDA-Public Use
  Company Number: WAES 0609USA05698

PATIENT
  Age: 73 Year
  Sex: Male

DRUGS (11)
  1. DECADRON [Suspect]
     Indication: PROPHYLAXIS OF NAUSEA AND VOMITING
     Dosage: SEE IMAGE, PO
     Route: 048
     Dates: start: 20060206, end: 20060206
  2. DECADRON [Suspect]
     Indication: PROPHYLAXIS OF NAUSEA AND VOMITING
     Dosage: SEE IMAGE, PO
     Route: 048
     Dates: start: 20060207, end: 20060209
  3. EMEND [Suspect]
     Indication: PROPHYLAXIS OF NAUSEA AND VOMITING
     Dosage: SEE IMAGE, PO
     Route: 048
     Dates: start: 20060206, end: 20060206
  4. EMEND [Suspect]
     Indication: PROPHYLAXIS OF NAUSEA AND VOMITING
     Dosage: SEE IMAGE, PO
     Route: 048
     Dates: start: 20060207, end: 20060209
  5. ALOXI [Suspect]
     Indication: PROPHYLAXIS
     Dosage: 0.25 MG/1X/IV
     Route: 042
     Dates: start: 20060206, end: 20060206
  6. ETOPOSIDE [Concomitant]
  7. ATENOLOL [Concomitant]
  8. ATORVASTATIN CALCIUM [Concomitant]
  9. CISPLATIN [Concomitant]
  10. HYDROCHLOROTHIAZIDE [Concomitant]
  11. PANTOPRAZOLE SODIUM [Concomitant]

REACTIONS (21)
  - BACTERIA URINE [None]
  - BLOOD BILIRUBIN INCREASED [None]
  - BLOOD CHLORIDE DECREASED [None]
  - BLOOD CREATINE PHOSPHOKINASE INCREASED [None]
  - BLOOD GLUCOSE INCREASED [None]
  - BLOOD THYROID STIMULATING HORMONE DECREASED [None]
  - BLOOD UREA INCREASED [None]
  - CEREBRAL HAEMORRHAGE [None]
  - CEREBRAL INFARCTION [None]
  - DEPRESSED LEVEL OF CONSCIOUSNESS [None]
  - DISORIENTATION [None]
  - ELECTROCARDIOGRAM ST-T SEGMENT ABNORMAL [None]
  - HAEMATEMESIS [None]
  - RED BLOOD CELLS URINE [None]
  - RESPIRATORY RATE INCREASED [None]
  - RHABDOMYOLYSIS [None]
  - SEPSIS [None]
  - SINUS TACHYCARDIA [None]
  - SUPRAVENTRICULAR EXTRASYSTOLES [None]
  - URINE KETONE BODY PRESENT [None]
  - WHITE BLOOD CELL COUNT DECREASED [None]
